FAERS Safety Report 23093765 (Version 1)
Quarter: 2023Q4

REPORT INFORMATION
  Report Type: Other
  Country: US (occurrence: None)
  Receive Date: 20231023
  Receipt Date: 20231023
  Transmission Date: 20240109
  Serious: Yes (Hospitalization)
  Sender: FDA-Public Use
  Company Number: US-ROCHE-3438777

PATIENT
  Age: 72 Year
  Sex: Male

DRUGS (1)
  1. ESBRIET [Suspect]
     Active Substance: PIRFENIDONE
     Indication: Pulmonary fibrosis
     Dosage: TAKE 1 CAPSULE BY MOUTH EVERY MORNING TAKE 2 CAPSULE(S) BY MOUTH AT NOON TAKE 1 CAPSULE BY MOUTH EVE
     Route: 048

REACTIONS (2)
  - Aneurysm [Unknown]
  - Nasopharyngitis [Unknown]
